FAERS Safety Report 19306200 (Version 1)
Quarter: 2021Q2

REPORT INFORMATION
  Report Type: Spontaneous
  Country: US (occurrence: US)
  Receive Date: 20210525
  Receipt Date: 20210525
  Transmission Date: 20210717
  Serious: Yes (Life-Threatening)
  Sender: FDA-Public Use
  Company Number: None

PATIENT
  Age: 58 Year
  Sex: Female
  Weight: 72 kg

DRUGS (5)
  1. BAMLANIVIMAB. [Suspect]
     Active Substance: BAMLANIVIMAB
     Indication: SARS-COV-2 TEST POSITIVE
     Dosage: ?          OTHER FREQUENCY:ONCE;?
     Route: 041
     Dates: start: 20210513
  2. ETESEVIMAB. [Suspect]
     Active Substance: ETESEVIMAB
     Indication: SARS-COV-2 TEST POSITIVE
     Dosage: ?          OTHER FREQUENCY:ONCE;?
     Route: 041
     Dates: start: 20210513
  3. BAMLANIVIMAB. [Concomitant]
     Active Substance: BAMLANIVIMAB
     Dates: start: 20210513
  4. ETESEVIMAB. [Concomitant]
     Active Substance: ETESEVIMAB
     Dates: start: 20210513
  5. ETESEVIMAB. [Concomitant]
     Active Substance: ETESEVIMAB
     Dates: start: 20210513

REACTIONS (10)
  - Dizziness [None]
  - Paraesthesia oral [None]
  - Tachypnoea [None]
  - Headache [None]
  - Flushing [None]
  - Infusion related reaction [None]
  - Dyspnoea [None]
  - Tachycardia [None]
  - Nausea [None]
  - Pruritus [None]

NARRATIVE: CASE EVENT DATE: 20210513
